FAERS Safety Report 8282888-X (Version None)
Quarter: 2012Q2

REPORT INFORMATION
  Report Type: 
  Country: None (occurrence: None)
  Receive Date: 20120413
  Receipt Date: 20120402
  Transmission Date: 20120825
  Serious: Yes (Death, Other)
  Sender: FDA-Public Use
  Company Number: IT-ROCHE-1050481

PATIENT

DRUGS (4)
  1. PEGINTERFERON ALFA-2A [Suspect]
     Indication: HEPATITIS C
  2. TACROLIMUS [Concomitant]
  3. CYCLOSPORINE [Concomitant]
  4. COPEGUS [Suspect]
     Indication: HEPATITIS C

REACTIONS (8)
  - TRANSPLANT REJECTION [None]
  - HEPATIC NEOPLASM MALIGNANT RECURRENT [None]
  - ANAEMIA [None]
  - NEUTROPENIA [None]
  - SEPSIS [None]
  - COMPLETED SUICIDE [None]
  - THYROID DISORDER [None]
  - MENTAL DISORDER [None]
